FAERS Safety Report 5162966-4 (Version None)
Quarter: 2006Q4

REPORT INFORMATION
  Report Type: 
  Country: None (occurrence: None)
  Receive Date: 20061201
  Receipt Date: 20061016
  Transmission Date: 20070319
  Serious: Yes (Other)
  Sender: FDA-Public Use
  Company Number: PHFR2006GB03084

PATIENT
  Sex: Female

DRUGS (2)
  1. ZOMETA [Suspect]
  2. CHEMOTHERAPEUTICS,OTHER [Concomitant]

REACTIONS (3)
  - BONE LESION [None]
  - HYPOAESTHESIA ORAL [None]
  - TOOTHACHE [None]
